FAERS Safety Report 5756660-6 (Version None)
Quarter: 2008Q2

REPORT INFORMATION
  Report Type: 
  Country: None (occurrence: None)
  Receive Date: 20080529
  Receipt Date: 20080516
  Transmission Date: 20081010
  Serious: No
  Sender: FDA-Public Use
  Company Number: SPI200800244

PATIENT
  Age: 78 Year
  Sex: Female
  Weight: 56.7 kg

DRUGS (9)
  1. AMITIZA [Suspect]
     Indication: CONSTIPATION
     Dosage: 24 MCG, BID, ORAL
     Route: 048
     Dates: start: 20080513
  2. STOOL SOFTENER (DOCUSATE SODIUM) [Concomitant]
  3. BENEFIBER (CYAMOPSIS TETRAGONOLOBA GUM) [Concomitant]
  4. PREVACID [Concomitant]
  5. TRICOR [Concomitant]
  6. DIGOXIN [Concomitant]
  7. SYNTHROID [Concomitant]
  8. MOTRIN [Concomitant]
  9. MIRALAX [Concomitant]

REACTIONS (2)
  - CHEST DISCOMFORT [None]
  - CONSTIPATION [None]
